FAERS Safety Report 16112844 (Version 1)
Quarter: 2019Q1

REPORT INFORMATION
  Report Type: Report from Study
  Country: FR (occurrence: FR)
  Receive Date: 20190325
  Receipt Date: 20190325
  Transmission Date: 20190418
  Serious: Yes (Other)
  Sender: FDA-Public Use
  Company Number: FR-PROVELL PHARMACEUTICALS-2064509

PATIENT
  Sex: Female

DRUGS (4)
  1. EUTHYROX [Suspect]
     Active Substance: LEVOTHYROXINE SODIUM
  2. EUTHYROX [Suspect]
     Active Substance: LEVOTHYROXINE SODIUM
  3. EUTHYRAL(NOVOTHYRAL) [Suspect]
     Active Substance: LEVOTHYROXINE SODIUM\LIOTHYRONINE SODIUM
  4. EUTHYROX [Suspect]
     Active Substance: LEVOTHYROXINE SODIUM
     Indication: POST PROCEDURAL HYPOTHYROIDISM

REACTIONS (15)
  - Fatigue [None]
  - Crying [None]
  - Heart rate increased [None]
  - Dyspnoea [None]
  - Stress [None]
  - Anxiety [None]
  - Gastrointestinal disorder [None]
  - Faeces soft [None]
  - Gastrointestinal sounds abnormal [None]
  - Defaecation urgency [None]
  - Thyroxine increased [None]
  - Frequent bowel movements [None]
  - Onychoclasis [None]
  - Panic attack [None]
  - Tri-iodothyronine increased [None]
